FAERS Safety Report 6739739-1 (Version None)
Quarter: 2010Q2

REPORT INFORMATION
  Report Type: 
  Country: None (occurrence: None)
  Receive Date: 20100525
  Receipt Date: 20100329
  Transmission Date: 20101027
  Serious: Yes (Other)
  Sender: FDA-Public Use
  Company Number: US-ROCHE-704537

PATIENT
  Sex: Female
  Weight: 49.9 kg

DRUGS (6)
  1. CELLCEPT [Suspect]
     Indication: LUPUS NEPHRITIS
     Dosage: OTHER INDICATION: STAGE 3 KIDNEY DISEASE
     Route: 048
     Dates: start: 20100315
  2. LISINOPRIL [Concomitant]
  3. NORVASC [Concomitant]
  4. PREDNISONE [Concomitant]
  5. CALCIUM [Concomitant]
  6. IRON [Concomitant]

REACTIONS (9)
  - ABDOMINAL PAIN UPPER [None]
  - BACK PAIN [None]
  - BURNING SENSATION [None]
  - HEADACHE [None]
  - HYPOAESTHESIA FACIAL [None]
  - INSOMNIA [None]
  - MUSCULAR WEAKNESS [None]
  - NIGHT SWEATS [None]
  - SENSATION OF HEAVINESS [None]
